FAERS Safety Report 22089864 (Version 1)
Quarter: 2023Q1

REPORT INFORMATION
  Report Type: Report from Study
  Country: US (occurrence: None)
  Receive Date: 20230313
  Receipt Date: 20230313
  Transmission Date: 20230417
  Serious: Yes (Life-Threatening, Hospitalization, Other)
  Sender: FDA-Public Use
  Company Number: US-ROCHE-2934332

PATIENT
  Age: 70 Year
  Sex: Male
  Weight: 112.58 kg

DRUGS (4)
  1. ATEZOLIZUMAB [Suspect]
     Active Substance: ATEZOLIZUMAB
     Indication: Small cell lung cancer
     Dosage: ON 14/SEP/2021, LAST DOSE OF ATEZOLIZUMAB WAS ADMINISTERED. TOTAL DOSE ADMINISTERED WAS 1200 MG.
     Route: 041
     Dates: start: 20210824
  2. CISPLATIN [Suspect]
     Active Substance: CISPLATIN
     Indication: Small cell lung cancer
     Dosage: ON 14/SEP/2021, LAST DOSE OF CISPLATIN WAS ADMINISTERED. TOTAL DOSE ADMINISTERED WAS 143 MG.
     Route: 065
     Dates: start: 20210803
  3. ETOPOSIDE [Suspect]
     Active Substance: ETOPOSIDE
     Indication: Small cell lung cancer
     Dosage: ON 16/SEP/2021, LAST DOSE OF ETOPOSIDE WAS ADMINISTERED AND TOTAL DOSE ADMINISTERED WAS 858 MG.
     Route: 065
     Dates: start: 20210803
  4. LEVAQUIN [Concomitant]
     Active Substance: LEVOFLOXACIN

REACTIONS (6)
  - Neutrophil count decreased [Recovered/Resolved]
  - White blood cell count decreased [Recovered/Resolved with Sequelae]
  - Lymphocyte count decreased [Not Recovered/Not Resolved]
  - Pneumonia aspiration [Not Recovered/Not Resolved]
  - Atrial fibrillation [Not Recovered/Not Resolved]
  - Aspiration [Not Recovered/Not Resolved]

NARRATIVE: CASE EVENT DATE: 20210928
